FAERS Safety Report 17207961 (Version 3)
Quarter: 2020Q1

REPORT INFORMATION
  Report Type: Spontaneous
  Country: BR (occurrence: BR)
  Receive Date: 20191227
  Receipt Date: 20200110
  Transmission Date: 20200409
  Serious: Yes (Hospitalization, Other)
  Sender: FDA-Public Use
  Company Number: BR-ROCHE-2501224

PATIENT
  Age: 61 Year
  Sex: Male

DRUGS (13)
  1. TAMARINE [CASSIA FISTULA;CORIANDRUM SATIVUM;SENNA ALEXANDRINA;TAMARIND [Concomitant]
     Route: 065
  2. MYCOPHENOLATE MOFETIL. [Suspect]
     Active Substance: MYCOPHENOLATE MOFETIL
     Indication: PRODUCT USED FOR UNKNOWN INDICATION
     Dosage: EVERY 12 HOURS (AT 10 AM AND 10 PM)
     Route: 065
  3. ACETYLCYSTEINE. [Concomitant]
     Active Substance: ACETYLCYSTEINE
     Dosage: ONCE A DAY IN THE MORNING
     Route: 065
  4. SIROLIMUS. [Concomitant]
     Active Substance: SIROLIMUS
     Dosage: ONCE A DAY IN THE MORNING
     Route: 065
  5. ATENOLOL. [Concomitant]
     Active Substance: ATENOLOL
     Dosage: EVERY 12 HOURS
     Route: 065
  6. BACTRIM [Suspect]
     Active Substance: SULFAMETHOXAZOLE\TRIMETHOPRIM
     Indication: ENTERITIS INFECTIOUS
     Route: 065
  7. PREDNISONE. [Concomitant]
     Active Substance: PREDNISONE
     Dosage: ONCE A DAY IN THE MORNING (AT 8 AM)
     Route: 065
  8. QUETIAPINE. [Concomitant]
     Active Substance: QUETIAPINE
     Dosage: ONCE A DAY AT NIGHT
     Route: 065
  9. RISPERIDONE. [Concomitant]
     Active Substance: RISPERIDONE
     Dosage: EVERY 12 HOURS
     Route: 065
  10. OMEPRAZOLE. [Concomitant]
     Active Substance: OMEPRAZOLE
     Dosage: ONCE A DAY IN THE MORNING
     Route: 065
  11. CLEXANE [Concomitant]
     Active Substance: ENOXAPARIN SODIUM
     Dosage: ONCE A DAY
     Route: 065
  12. NISTATIN [Concomitant]
     Active Substance: NYSTATIN
  13. RIVOTRIL [Suspect]
     Active Substance: CLONAZEPAM
     Indication: PRODUCT USED FOR UNKNOWN INDICATION
     Dosage: 5 DROPS
     Route: 065

REACTIONS (13)
  - Hypoglycaemia [Unknown]
  - Gastroenteritis [Unknown]
  - Otorrhoea [Unknown]
  - Intentional product use issue [Unknown]
  - Ear haemorrhage [Unknown]
  - Ear pain [Unknown]
  - Off label use [Unknown]
  - Rhinorrhoea [Unknown]
  - Hyperhidrosis [Unknown]
  - Gastroenteritis staphylococcal [Recovering/Resolving]
  - Apathy [Recovered/Resolved]
  - Pyrexia [Unknown]
  - Enteritis infectious [Unknown]
